FAERS Safety Report 18451858 (Version 1)
Quarter: 2020Q4

REPORT INFORMATION
  Report Type: Spontaneous
  Country: US (occurrence: US)
  Receive Date: 20201030
  Receipt Date: 20201030
  Transmission Date: 20210114
  Serious: Yes (Other)
  Sender: FDA-Public Use
  Company Number: None

PATIENT
  Age: 58 Year
  Sex: Male
  Weight: 99.45 kg

DRUGS (1)
  1. LYUMJEV [Suspect]
     Active Substance: INSULIN LISPRO-AABC
     Indication: TYPE 2 DIABETES MELLITUS
     Route: 058
     Dates: start: 20201022, end: 20201029

REACTIONS (3)
  - Injection site irritation [None]
  - Injection site erythema [None]
  - Injection site pain [None]

NARRATIVE: CASE EVENT DATE: 20201029
